FAERS Safety Report 11043056 (Version 1)
Quarter: 2015Q2

REPORT INFORMATION
  Report Type: Spontaneous
  Country: MX (occurrence: MX)
  Receive Date: 20150417
  Receipt Date: 20150417
  Transmission Date: 20150821
  Serious: Yes (Hospitalization, Other)
  Sender: FDA-Public Use
  Company Number: MX-ROCHE-1564114

PATIENT
  Sex: Male

DRUGS (1)
  1. XELODA [Suspect]
     Active Substance: CAPECITABINE
     Indication: COLORECTAL CANCER
     Dosage: 4-0-3
     Route: 048
     Dates: start: 20110923, end: 20120905

REACTIONS (3)
  - Faecal incontinence [Not Recovered/Not Resolved]
  - Anal fistula [Recovered/Resolved with Sequelae]
  - Erectile dysfunction [Not Recovered/Not Resolved]
